FAERS Safety Report 6649975-0 (Version None)
Quarter: 2010Q1

REPORT INFORMATION
  Report Type: 
  Country: None (occurrence: None)
  Receive Date: 20100324
  Receipt Date: 20100324
  Transmission Date: 20100710
  Serious: No
  Sender: FDA-Public Use
  Company Number: None

PATIENT
  Sex: Female
  Weight: 99.7913 kg

DRUGS (1)
  1. ESTRADIOL [Suspect]
     Indication: MENOPAUSE
     Dosage: 1 MG QD ORAL
     Route: 048
     Dates: start: 20060101

REACTIONS (2)
  - HEADACHE [None]
  - NIGHT SWEATS [None]
